FAERS Safety Report 5278864-1 (Version None)
Quarter: 2007Q1

REPORT INFORMATION
  Report Type: 
  Country: None (occurrence: None)
  Receive Date: 20070328
  Receipt Date: 20070321
  Transmission Date: 20070707
  Serious: Yes (Other)
  Sender: FDA-Public Use
  Company Number: 2004CG01725

PATIENT
  Age: 70 Year
  Sex: Female

DRUGS (1)
  1. MARCAINE [Suspect]
     Indication: SPINAL ANAESTHESIA
     Route: 037
     Dates: start: 20031013, end: 20031013

REACTIONS (2)
  - MUSCULAR WEAKNESS [None]
  - SENSORY DISTURBANCE [None]
